FAERS Safety Report 8958638 (Version 2)
Quarter: 2013Q1

REPORT INFORMATION
  Report Type: Spontaneous
  Country: US (occurrence: None)
  Receive Date: 20121203
  Receipt Date: 20130128
  Transmission Date: 20140127
  Serious: Yes (Other)
  Sender: FDA-Public Use
  Company Number: DSA_61111_2012

PATIENT
  Age: 46 Year
  Sex: Male

DRUGS (2)
  1. XENAZINE 25 MG (NOT SPECIFIED) [Suspect]
     Indication: HUNTINGTON^S DISEASE
     Route: 048
     Dates: start: 20120424
  2. ASA (UNKNOWN) [Concomitant]

REACTIONS (1)
  - Altered state of consciousness [None]
